FAERS Safety Report 6163415-X (Version None)
Quarter: 2009Q2

REPORT INFORMATION
  Report Type: 
  Country: None (occurrence: None)
  Receive Date: 20090422
  Receipt Date: 20090416
  Transmission Date: 20091009
  Serious: Yes (Life-Threatening, Other)
  Sender: FDA-Public Use
  Company Number: PHHY2009JP14304

PATIENT
  Sex: Female

DRUGS (1)
  1. FEMARA [Suspect]
     Indication: BREAST CANCER
     Dosage: UNK
     Route: 048
     Dates: start: 20090301, end: 20090413

REACTIONS (4)
  - BLOOD DISORDER [None]
  - HAEMOGLOBIN DECREASED [None]
  - LEUKOPENIA [None]
  - PLATELET COUNT DECREASED [None]
